FAERS Safety Report 20320807 (Version 2)
Quarter: 2022Q1

REPORT INFORMATION
  Report Type: Spontaneous
  Country: JP (occurrence: JP)
  Receive Date: 20220111
  Receipt Date: 20220209
  Transmission Date: 20220423
  Serious: Yes (Other)
  Sender: FDA-Public Use
  Company Number: JP-NOVARTISPH-NVSJ2022JP000715

PATIENT

DRUGS (1)
  1. BEOVU [Suspect]
     Active Substance: BROLUCIZUMAB-DBLL
     Indication: Age-related macular degeneration
     Dosage: 6 MG
     Route: 031
     Dates: start: 20211216, end: 20211216

REACTIONS (7)
  - Iridocyclitis [Unknown]
  - Keratic precipitates [Unknown]
  - Retinal vasculitis [Unknown]
  - Retinal vascular occlusion [Unknown]
  - Uveitis [Recovering/Resolving]
  - Blindness [Unknown]
  - Eye inflammation [Unknown]

NARRATIVE: CASE EVENT DATE: 20220104
